FAERS Safety Report 13386714 (Version 3)
Quarter: 2017Q3

REPORT INFORMATION
  Report Type: Spontaneous
  Country: US (occurrence: US)
  Receive Date: 20170330
  Receipt Date: 20170731
  Transmission Date: 20171127
  Serious: No
  Sender: FDA-Public Use
  Company Number: US-PFIZER INC-2017135567

PATIENT
  Age: 50 Year
  Sex: Female
  Weight: 56.69 kg

DRUGS (3)
  1. IBRANCE [Suspect]
     Active Substance: PALBOCICLIB
     Indication: BREAST CANCER METASTATIC
     Dosage: 125 MG, CYCLIC (DAYS 1-21, Q28 DAYS)
     Route: 048
     Dates: start: 20170217
  2. IBRANCE [Suspect]
     Active Substance: PALBOCICLIB
     Dosage: 125 MG, CYCLIC (DAYS 1-21, Q28 DAYS)
     Route: 048
     Dates: start: 20170302
  3. IBRANCE [Suspect]
     Active Substance: PALBOCICLIB
     Dosage: 125 MG, CYCLIC (DAYS 1-21, Q28 DAYS)
     Route: 048
     Dates: end: 20170717

REACTIONS (2)
  - Full blood count decreased [Unknown]
  - Neoplasm progression [Unknown]
